FAERS Safety Report 8889998 (Version 4)
Quarter: 2013Q1

REPORT INFORMATION
  Report Type: Spontaneous
  Country: US (occurrence: US)
  Receive Date: 20121107
  Receipt Date: 20130111
  Transmission Date: 20140127
  Serious: No
  Sender: FDA-Public Use
  Company Number: US-PFIZER INC-2012273839

PATIENT
  Age: 77 Year
  Sex: Female
  Weight: 79.37 kg

DRUGS (10)
  1. TIKOSYN [Suspect]
     Indication: ATRIAL FIBRILLATION
     Dosage: 0.25 MG, 2X/DAY
     Dates: start: 201112
  2. TIKOSYN [Suspect]
     Indication: TACHYARRHYTHMIA
  3. ASPIRIN [Concomitant]
     Indication: HYPERTENSION
     Dosage: 81 MG, DAILY
  4. COUMADIN [Concomitant]
     Indication: HYPERTENSION
     Dosage: 5 MG, DAILY
  5. WARFARIN [Concomitant]
     Indication: HYPERTENSION
     Dosage: UNK
  6. LASIX [Concomitant]
     Dosage: UNK
  7. DULCOLAX [Concomitant]
     Dosage: AS NEEDED
  8. VITAMIN B12 [Concomitant]
     Dosage: 12500 UG, DAILY
  9. PREMARIN [Concomitant]
     Dosage: 0.625 MG/GM CREAM
     Route: 061
  10. PREDNISONE [Concomitant]
     Dosage: 5 MG, UNK
     Route: 048

REACTIONS (12)
  - Dyspnoea [Unknown]
  - Dizziness [Unknown]
  - Asthenia [Unknown]
  - Visual impairment [Unknown]
  - Balance disorder [Unknown]
  - Rhinorrhoea [Unknown]
  - Drug intolerance [Unknown]
  - Pain in extremity [Unknown]
  - Alopecia [Unknown]
  - Palpitations [Unknown]
  - Fatigue [Unknown]
  - Hypoaesthesia [Unknown]
